FAERS Safety Report 25504203 (Version 1)
Quarter: 2025Q3

REPORT INFORMATION
  Report Type: Spontaneous
  Country: US (occurrence: None)
  Receive Date: 20250701
  Receipt Date: 20250701
  Transmission Date: 20251021
  Serious: Yes (Other)
  Sender: FDA-CTU
  Company Number: None

PATIENT
  Age: 14 Day
  Sex: Female
  Weight: 3.86 kg

DRUGS (1)
  1. BEYFORTUS [Suspect]
     Active Substance: NIRSEVIMAB-ALIP
     Route: 030

REACTIONS (8)
  - Agitation [None]
  - Depressed level of consciousness [None]
  - Somnolence [None]
  - Therapy interrupted [None]
  - Lethargy [None]
  - Rash [None]
  - Diarrhoea [None]
  - Neonatal disorder [None]

NARRATIVE: CASE EVENT DATE: 20241014
